FAERS Safety Report 17237930 (Version 1)
Quarter: 2020Q1

REPORT INFORMATION
  Report Type: Report from Study
  Country: BE (occurrence: BE)
  Receive Date: 20200106
  Receipt Date: 20200106
  Transmission Date: 20200409
  Serious: No
  Sender: FDA-Public Use
  Company Number: BE-PACIRA-201900373

PATIENT

DRUGS (4)
  1. DICLOFENAC [Concomitant]
     Active Substance: DICLOFENAC
     Indication: PAIN PROPHYLAXIS
     Dosage: 75 MG 2 TIMES DAILY
     Route: 065
  2. EXPAREL [Suspect]
     Active Substance: BUPIVACAINE
     Indication: ANALGESIC THERAPY
     Dosage: 5 ML, 1.33%, SINGLE DOSE
     Route: 065
  3. BUPIVACAINE HCL [Suspect]
     Active Substance: BUPIVACAINE HYDROCHLORIDE
     Indication: ANALGESIC THERAPY
     Dosage: 2.5 ML, SINGLE DOSE
  4. PARACETAMOL [Concomitant]
     Active Substance: ACETAMINOPHEN
     Indication: PAIN PROPHYLAXIS
     Dosage: 1 G EVERY 6 HOURS
     Route: 065

REACTIONS (4)
  - Insomnia [Unknown]
  - Wound haemorrhage [Unknown]
  - Headache [Unknown]
  - Pruritus [Unknown]
